FAERS Safety Report 8586877-7 (Version None)
Quarter: 2012Q3

REPORT INFORMATION
  Report Type: 
  Country: None (occurrence: None)
  Receive Date: 20120810
  Receipt Date: 20120424
  Transmission Date: 20120928
  Serious: Yes (Death)
  Sender: FDA-Public Use
  Company Number: CHPA2012US001535

PATIENT
  Age: 48 Year
  Sex: Female

DRUGS (1)
  1. EXCEDRIN EXTRA STRENGTH TABLETS [Suspect]
     Indication: PAIN
     Dosage: 1 DF, ONCE/SINGLE
     Route: 048
     Dates: start: 20090101, end: 20090101

REACTIONS (2)
  - BREAST CANCER METASTATIC [None]
  - UNDERDOSE [None]
